FAERS Safety Report 21960942 (Version 1)
Quarter: 2023Q1

REPORT INFORMATION
  Report Type: Spontaneous
  Country: JP (occurrence: JP)
  Receive Date: 20230207
  Receipt Date: 20230207
  Transmission Date: 20230417
  Serious: Yes (Hospitalization, Other)
  Sender: FDA-Public Use
  Company Number: JP-SUN PHARMACEUTICAL INDUSTRIES LTD-2023R1-377066

PATIENT
  Age: 80 Year
  Sex: Female

DRUGS (2)
  1. ACETAZOLAMIDE [Suspect]
     Active Substance: ACETAZOLAMIDE
     Indication: Epilepsy
     Dosage: UNK
     Route: 048
  2. ELDECALCITOL [Suspect]
     Active Substance: ELDECALCITOL
     Indication: Osteoporosis
     Dosage: UNK
     Route: 048

REACTIONS (1)
  - Nephrocalcinosis [Unknown]
